FAERS Safety Report 5407225-7 (Version None)
Quarter: 2007Q3

REPORT INFORMATION
  Report Type: 
  Country: None (occurrence: None)
  Receive Date: 20070807
  Receipt Date: 20070801
  Transmission Date: 20080115
  Serious: Yes (Hospitalization)
  Sender: FDA-Public Use
  Company Number: A0667676A

PATIENT
  Age: 73 Year
  Sex: Female

DRUGS (7)
  1. ADVAIR DISKUS 100/50 [Suspect]
     Indication: CHRONIC OBSTRUCTIVE PULMONARY DISEASE
     Dosage: 1PUFF TWICE PER DAY
     Route: 055
     Dates: start: 20010101, end: 20070728
  2. ALLEGRA [Concomitant]
  3. SINGULAIR [Concomitant]
  4. DUONEB [Concomitant]
  5. HYZAAR [Concomitant]
  6. ARTHRITIS MEDICATION [Concomitant]
  7. OXYBUTYNIN CHLORIDE [Concomitant]

REACTIONS (3)
  - ASTHMA [None]
  - DYSPNOEA [None]
  - TREATMENT NONCOMPLIANCE [None]
